FAERS Safety Report 13193878 (Version 1)
Quarter: 2017Q1

REPORT INFORMATION
  Report Type: Spontaneous
  Country: US (occurrence: US)
  Receive Date: 20170207
  Receipt Date: 20170207
  Transmission Date: 20170428
  Serious: No
  Sender: FDA-Public Use
  Company Number: US-BAYER-2017-023900

PATIENT
  Age: 8 Year
  Sex: Female
  Weight: 47.98 kg

DRUGS (1)
  1. MIRALAX [Suspect]
     Active Substance: POLYETHYLENE GLYCOL 3350
     Dosage: UNK
     Route: 048
     Dates: start: 2008

REACTIONS (2)
  - Product use issue [Unknown]
  - Product use issue [None]

NARRATIVE: CASE EVENT DATE: 2008
